FAERS Safety Report 13371485 (Version 1)
Quarter: 2017Q1

REPORT INFORMATION
  Report Type: Spontaneous
  Country: US (occurrence: US)
  Receive Date: 20170324
  Receipt Date: 20170324
  Transmission Date: 20170429
  Serious: No
  Sender: FDA-Public Use
  Company Number: US-009507513-1703USA000425

PATIENT
  Age: 70 Year
  Sex: Female

DRUGS (16)
  1. ASPIRIN. [Concomitant]
     Active Substance: ASPIRIN
     Route: 048
  2. CYANOCOBALAMIN. [Concomitant]
     Active Substance: CYANOCOBALAMIN
  3. AMLODIPINE [Concomitant]
     Active Substance: AMLODIPINE BESYLATE
  4. CLONIDINE. [Concomitant]
     Active Substance: CLONIDINE
  5. OMEPRAZOLE. [Concomitant]
     Active Substance: OMEPRAZOLE
  6. GLIMEPIRIDE. [Concomitant]
     Active Substance: GLIMEPIRIDE
  7. VITAMIN D [Concomitant]
     Active Substance: CHOLECALCIFEROL
  8. GEMFIBROZIL. [Concomitant]
     Active Substance: GEMFIBROZIL
  9. JANUVIA [Suspect]
     Active Substance: SITAGLIPTIN PHOSPHATE
     Indication: TYPE 2 DIABETES MELLITUS
     Dosage: 1 TABLET, QD
     Route: 048
     Dates: start: 201603, end: 201604
  10. COZAAR [Concomitant]
     Active Substance: LOSARTAN POTASSIUM
     Route: 048
  11. BUMETANIDE. [Concomitant]
     Active Substance: BUMETANIDE
  12. METFORMIN [Concomitant]
     Active Substance: METFORMIN HYDROCHLORIDE
  13. ALLOPURINOL. [Concomitant]
     Active Substance: ALLOPURINOL
  14. LEVOTHYROXINE SODIUM. [Concomitant]
     Active Substance: LEVOTHYROXINE SODIUM
     Route: 048
  15. METOPROLOL. [Concomitant]
     Active Substance: METOPROLOL
  16. UBIDECARENONE [Concomitant]
     Active Substance: UBIDECARENONE

REACTIONS (1)
  - Inability to afford medication [Unknown]

NARRATIVE: CASE EVENT DATE: 201604
